FAERS Safety Report 15722195 (Version 2)
Quarter: 2025Q3

REPORT INFORMATION
  Report Type: Spontaneous
  Country: GB (occurrence: GB)
  Receive Date: 20181214
  Receipt Date: 20250718
  Transmission Date: 20251020
  Serious: Yes (Life-Threatening, Other)
  Sender: AUROBINDO
  Company Number: GB-AUROBINDO-AUR-APL-2018-060068

PATIENT
  Age: 45 Year
  Sex: Male

DRUGS (5)
  1. LOPERAMIDE [Suspect]
     Active Substance: LOPERAMIDE
     Indication: Diarrhoea
     Route: 065
  2. LOPERAMIDE [Suspect]
     Active Substance: LOPERAMIDE
     Route: 065
  3. LOPERAMIDE [Suspect]
     Active Substance: LOPERAMIDE
     Route: 065
  4. NEFOPAM [Concomitant]
     Active Substance: NEFOPAM
     Indication: Product used for unknown indication
     Dosage: 60 MILLIGRAM, ONCE A DAY
     Route: 065
  5. FLUOXETINE [Concomitant]
     Active Substance: FLUOXETINE HYDROCHLORIDE
     Indication: Product used for unknown indication
     Dosage: 20 MILLIGRAM, ONCE A DAY
     Route: 065

REACTIONS (3)
  - Hypogonadism [Unknown]
  - Hypopituitarism [Unknown]
  - Adrenal insufficiency [Unknown]
